FAERS Safety Report 15485806 (Version 1)
Quarter: 2018Q4

REPORT INFORMATION
  Report Type: Spontaneous
  Country: AU (occurrence: AU)
  Receive Date: 20181010
  Receipt Date: 20181010
  Transmission Date: 20190205
  Serious: Yes (Hospitalization, Other)
  Sender: FDA-Public Use
  Company Number: AU-009507513-1810AUS002459

PATIENT
  Age: 25 Year
  Sex: Female

DRUGS (8)
  1. LIDOCAINE. [Suspect]
     Active Substance: LIDOCAINE
  2. MAXALT-MLT [Suspect]
     Active Substance: RIZATRIPTAN BENZOATE
  3. TOPAMAX [Suspect]
     Active Substance: TOPIRAMATE
  4. TRAMADOL HYDROCHLORIDE. [Suspect]
     Active Substance: TRAMADOL HYDROCHLORIDE
  5. SUMATRIPTAN. [Suspect]
     Active Substance: SUMATRIPTAN
  6. ZOMIG [Suspect]
     Active Substance: ZOLMITRIPTAN
  7. KETAMINE [Suspect]
     Active Substance: KETAMINE
  8. BOTOX [Suspect]
     Active Substance: ONABOTULINUMTOXINA
     Dosage: EVERY 12 WEEKS

REACTIONS (9)
  - Anaphylactic reaction [Unknown]
  - Muscle twitching [Unknown]
  - Nephrolithiasis [Unknown]
  - Migraine [Unknown]
  - Drug ineffective [Unknown]
  - Renal pain [Unknown]
  - Stress [Unknown]
  - Drug effect decreased [Unknown]
  - Hallucination [Unknown]
